FAERS Safety Report 7720568-7 (Version None)
Quarter: 2011Q3

REPORT INFORMATION
  Report Type: 
  Country: None (occurrence: None)
  Receive Date: 20110825
  Receipt Date: 20110810
  Transmission Date: 20111222
  Serious: Yes (Life-Threatening)
  Sender: FDA-Public Use
  Company Number: 15961824

PATIENT
  Age: 82 Year
  Sex: Female

DRUGS (5)
  1. FUROSEMIDE [Concomitant]
  2. ZOLOFT [Concomitant]
  3. ZANEDIP (LERCANIDIPINE HCL) [Concomitant]
  4. COUMADIN [Suspect]
     Indication: PULMONARY EMBOLISM
     Dosage: 36.25 MILLIGRAM 1 WEEK ORAL
     Route: 048
     Dates: start: 20090812
  5. DEPAKENE [Concomitant]

REACTIONS (2)
  - BRAIN COMPRESSION [None]
  - CEREBELLAR HAEMORRHAGE [None]
